FAERS Safety Report 9062993 (Version 1)
Quarter: 2013Q1

REPORT INFORMATION
  Report Type: Spontaneous
  Country: FR (occurrence: FR)
  Receive Date: 20130213
  Receipt Date: 20130213
  Transmission Date: 20140127
  Serious: Yes (Hospitalization)
  Sender: FDA-Public Use
  Company Number: FR-AMGEN-FRASP2013009575

PATIENT
  Age: 67 Year
  Sex: Male
  Weight: 84 kg

DRUGS (4)
  1. VECTIBIX [Suspect]
     Indication: COLON CANCER METASTATIC
     Dosage: 20 MG/ML, UNK
     Route: 042
     Dates: start: 20121120, end: 20121218
  2. FLUOROURACIL [Concomitant]
     Indication: COLON CANCER METASTATIC
     Dosage: UNK
  3. IRINOTECAN [Concomitant]
     Indication: COLON CANCER METASTATIC
     Dosage: UNK
  4. LEVOFOLINATE CALCIUM [Concomitant]
     Indication: COLON CANCER METASTATIC
     Dosage: UNK

REACTIONS (1)
  - Rash erythematous [Recovering/Resolving]
